FAERS Safety Report 22642968 (Version 1)
Quarter: 2023Q2

REPORT INFORMATION
  Report Type: Spontaneous
  Country: IT (occurrence: IT)
  Receive Date: 20230627
  Receipt Date: 20230627
  Transmission Date: 20230722
  Serious: No
  Sender: FDA-Public Use
  Company Number: IT-ALKEM LABORATORIES LIMITED-IT-ALKEM-2023-04030

PATIENT
  Age: 35 Year
  Sex: Female

DRUGS (4)
  1. MORPHINE SULFATE [Suspect]
     Active Substance: MORPHINE SULFATE
     Indication: Spinal anaesthesia
     Dosage: 100 MICROGRAM
     Route: 037
  2. BUPIVACAINE [Suspect]
     Active Substance: BUPIVACAINE
     Indication: Spinal anaesthesia
     Dosage: 10 MILLIGRAM
     Route: 037
  3. SUFENTANIL [Suspect]
     Active Substance: SUFENTANIL
     Indication: Spinal anaesthesia
     Dosage: 5 MICROGRAM
     Route: 037
  4. OXYTOCIN [Suspect]
     Active Substance: OXYTOCIN
     Indication: Uterine atony
     Dosage: UNK (5 UNITS IN SLOW BOLUS AND THEN 20 UNITS BY CONTINUOUS INFUSION IN 3 H)
     Route: 065

REACTIONS (1)
  - Exposure during pregnancy [Unknown]
